FAERS Safety Report 9295679 (Version 2)
Quarter: 2013Q3

REPORT INFORMATION
  Report Type: Spontaneous
  Country: US (occurrence: US)
  Receive Date: 20130517
  Receipt Date: 20130801
  Transmission Date: 20140515
  Serious: Yes (Hospitalization)
  Sender: FDA-Public Use
  Company Number: US-SANOFI-AVENTIS-2013SA049247

PATIENT
  Sex: Female

DRUGS (1)
  1. AUBAGIO [Suspect]
     Indication: MULTIPLE SCLEROSIS
     Route: 048
     Dates: start: 20130422

REACTIONS (5)
  - Blindness [Not Recovered/Not Resolved]
  - Blister [Recovering/Resolving]
  - Pain [Recovering/Resolving]
  - Infection [Not Recovered/Not Resolved]
  - Venous insufficiency [Unknown]
